FAERS Safety Report 4754020-8 (Version None)
Quarter: 2005Q3

REPORT INFORMATION
  Report Type: 
  Country: None (occurrence: None)
  Receive Date: 20050826
  Receipt Date: 20050311
  Transmission Date: 20060218
  Serious: Yes (Hospitalization)
  Sender: FDA-Public Use
  Company Number: US-MERCK-0503USA02687

PATIENT
  Age: 46 Year
  Sex: Male
  Weight: 84 kg

DRUGS (13)
  1. VIOXX [Suspect]
     Indication: ARTHRITIS
     Route: 048
     Dates: start: 20010101
  2. VIOXX [Suspect]
     Route: 048
     Dates: end: 20030501
  3. VIOXX [Suspect]
     Indication: BACK PAIN
     Route: 048
     Dates: start: 20010101
  4. VIOXX [Suspect]
     Route: 048
     Dates: end: 20030501
  5. LIPITOR [Concomitant]
     Route: 065
  6. VITAMINS (UNSPECIFIED) [Concomitant]
     Route: 065
  7. CELEBREX [Concomitant]
     Route: 065
     Dates: start: 19980101, end: 20030701
  8. WELLBUTRIN [Concomitant]
     Indication: DEPRESSION
     Route: 065
     Dates: start: 20020101
  9. FLEXERIL [Concomitant]
     Route: 065
     Dates: start: 19900101
  10. PROZAC [Concomitant]
     Route: 065
     Dates: start: 19890101, end: 20010801
  11. PREVACID [Concomitant]
     Indication: OESOPHAGEAL DISORDER
     Route: 065
     Dates: start: 20030401
  12. PREVACID [Concomitant]
     Indication: GASTROOESOPHAGEAL REFLUX DISEASE
     Route: 065
     Dates: start: 20030401
  13. ZOCOR [Concomitant]
     Route: 065

REACTIONS (29)
  - ACUTE MYOCARDIAL INFARCTION [None]
  - ASTHENIA [None]
  - BRACHIAL PLEXUS LESION [None]
  - CHEST PAIN [None]
  - CONSTIPATION [None]
  - CORONARY ARTERY DISEASE [None]
  - CORONARY ARTERY OCCLUSION [None]
  - CORONARY ARTERY STENOSIS [None]
  - DELIRIUM TREMENS [None]
  - DEPRESSION [None]
  - DYSPHAGIA [None]
  - DYSPNOEA [None]
  - FACE INJURY [None]
  - GASTROOESOPHAGEAL REFLUX DISEASE [None]
  - HAEMATOCHEZIA [None]
  - HEAD INJURY [None]
  - HEADACHE [None]
  - HEPATITIS ALCOHOLIC [None]
  - HYPERTENSION [None]
  - JOINT DISLOCATION [None]
  - LIGAMENT INJURY [None]
  - NASAL SEPTUM DEVIATION [None]
  - NIGHT SWEATS [None]
  - OESOPHAGEAL DISORDER [None]
  - PALPITATIONS [None]
  - RECTAL HAEMORRHAGE [None]
  - SEASONAL ALLERGY [None]
  - SINUSITIS [None]
  - SKIN PAPILLOMA [None]
